FAERS Safety Report 21209091 (Version 1)
Quarter: 2022Q3

REPORT INFORMATION
  Report Type: Spontaneous
  Country: US (occurrence: US)
  Receive Date: 20220812
  Receipt Date: 20220812
  Transmission Date: 20221027
  Serious: No
  Sender: FDA-Public Use
  Company Number: US-009507513-2207USA007982

PATIENT
  Age: 42 Year
  Sex: Female

DRUGS (4)
  1. KEYTRUDA [Suspect]
     Active Substance: PEMBROLIZUMAB
     Indication: Progressive multifocal leukoencephalopathy
  2. MIRTAZAPINE [Concomitant]
     Active Substance: MIRTAZAPINE
     Indication: Progressive multifocal leukoencephalopathy
  3. MEFLOQUINE [Concomitant]
     Active Substance: MEFLOQUINE
     Indication: Progressive multifocal leukoencephalopathy
  4. INTERFERON BETA [Concomitant]
     Active Substance: INTERFERON BETA
     Indication: Sarcoidosis

REACTIONS (1)
  - Product use in unapproved indication [Unknown]
